FAERS Safety Report 7309335-6 (Version None)
Quarter: 2011Q1

REPORT INFORMATION
  Report Type: 
  Country: None (occurrence: None)
  Receive Date: 20110223
  Receipt Date: 20110211
  Transmission Date: 20110831
  Serious: Yes (Death, Hospitalization, Other)
  Sender: FDA-Public Use
  Company Number: DE-PFIZER INC-2006032710

PATIENT
  Age: 67 Year
  Sex: Female
  Weight: 55 kg

DRUGS (5)
  1. AROMASIN [Concomitant]
     Route: 048
     Dates: start: 20050401
  2. SUNITINIB MALATE [Suspect]
     Indication: METASTATIC RENAL CELL CARCINOMA
     Dosage: 50 MG, 1X/DAY, 4 WEEKS ON 2 WEEKS OFF
     Route: 048
     Dates: start: 20060215, end: 20060302
  3. DURAGESIC-100 [Interacting]
     Dosage: 1 EVERY 3 DAYS
     Route: 062
     Dates: start: 20051001, end: 20060304
  4. ZOLEDRONIC ACID [Concomitant]
     Route: 048
     Dates: end: 20060210
  5. ALIZAPRIDE [Concomitant]
     Route: 048
     Dates: start: 20060101

REACTIONS (5)
  - RESPIRATORY FAILURE [None]
  - DRUG INTERACTION [None]
  - DEVICE DISLOCATION [None]
  - SOMNOLENCE [None]
  - HAEMORRHAGE [None]
